FAERS Safety Report 5216169-5 (Version None)
Quarter: 2007Q1

REPORT INFORMATION
  Report Type: 
  Country: None (occurrence: None)
  Receive Date: 20070123
  Receipt Date: 20070110
  Transmission Date: 20070707
  Serious: Yes (Hospitalization, Other)
  Sender: FDA-Public Use
  Company Number: JP-ELI_LILLY_AND_COMPANY-JP200606005237

PATIENT
  Age: 66 Year
  Sex: Female

DRUGS (2)
  1. EVISTA [Suspect]
     Indication: OSTEOPOROSIS
     Dosage: UNK, UNK
     Route: 048
     Dates: end: 20060501
  2. ESTRIEL [Concomitant]
     Route: 048
     Dates: end: 20060501

REACTIONS (2)
  - CEREBELLAR INFARCTION [None]
  - DEEP VEIN THROMBOSIS [None]
